FAERS Safety Report 13237760 (Version 3)
Quarter: 2017Q2

REPORT INFORMATION
  Report Type: Report from Study
  Country: GB (occurrence: GB)
  Receive Date: 20170216
  Receipt Date: 20170501
  Transmission Date: 20170830
  Serious: Yes (Hospitalization, Other)
  Sender: FDA-Public Use
  Company Number: GB-AMGEN-GBRSL2017022350

PATIENT
  Age: 85 Year
  Sex: Female

DRUGS (1)
  1. ARANESP [Suspect]
     Active Substance: DARBEPOETIN ALFA
     Indication: PRODUCT USED FOR UNKNOWN INDICATION
     Dosage: 20 MUG, UNK
     Route: 065

REACTIONS (2)
  - Dyspnoea [Unknown]
  - Cardiac valve disease [Unknown]

NARRATIVE: CASE EVENT DATE: 2017
